APPROVED DRUG PRODUCT: NARDIL
Active Ingredient: PHENELZINE SULFATE
Strength: EQ 15MG BASE
Dosage Form/Route: TABLET;ORAL
Application: N011909 | Product #002 | TE Code: AB
Applicant: PARKE DAVIS DIV WARNER LAMBERT CO
Approved: Approved Prior to Jan 1, 1982 | RLD: Yes | RS: Yes | Type: RX